FAERS Safety Report 18234626 (Version 1)
Quarter: 2020Q3

REPORT INFORMATION
  Report Type: Spontaneous
  Country: US (occurrence: US)
  Receive Date: 20200904
  Receipt Date: 20200904
  Transmission Date: 20201103
  Serious: No
  Sender: FDA-Public Use
  Company Number: US-PFIZER INC-2019241068

PATIENT
  Age: 44 Year
  Sex: Female
  Weight: 43 kg

DRUGS (1)
  1. IBRANCE [Suspect]
     Active Substance: PALBOCICLIB
     Indication: BREAST CANCER FEMALE
     Dosage: 125 MG, CYCLIC [ONCE DAILY FOR 21 DAYS ON 7 DAYS OFF]
     Route: 048

REACTIONS (2)
  - Migraine [Unknown]
  - Nausea [Unknown]
